FAERS Safety Report 15653880 (Version 1)
Quarter: 2018Q4

REPORT INFORMATION
  Report Type: Spontaneous
  Country: US (occurrence: US)
  Receive Date: 20181124
  Receipt Date: 20181124
  Transmission Date: 20190205
  Serious: Yes (Disabling)
  Sender: FDA-Public Use
  Company Number: None

PATIENT
  Age: 54 Year
  Sex: Male
  Weight: 85.5 kg

DRUGS (5)
  1. DESCOVY [Concomitant]
     Active Substance: EMTRICITABINE\TENOFOVIR ALAFENAMIDE FUMARATE
  2. MULTIVITAMIN [Concomitant]
     Active Substance: VITAMINS
  3. PREZISTA [Concomitant]
     Active Substance: DARUNAVIR ETHANOLATE
  4. VITAMIN D [Concomitant]
     Active Substance: CHOLECALCIFEROL
  5. RITONAVIR. [Suspect]
     Active Substance: RITONAVIR
     Indication: HIV INFECTION
     Dosage: ?          QUANTITY:30 TABLET(S);?
     Route: 048
     Dates: start: 20180702, end: 20181123

REACTIONS (2)
  - Product substitution issue [None]
  - Tooth loss [None]

NARRATIVE: CASE EVENT DATE: 20180910
